FAERS Safety Report 13771105 (Version 1)
Quarter: 2017Q3

REPORT INFORMATION
  Report Type: Spontaneous
  Country: FR (occurrence: FR)
  Receive Date: 20170720
  Receipt Date: 20170720
  Transmission Date: 20171127
  Serious: Yes (Hospitalization)
  Sender: FDA-Public Use
  Company Number: FR-MERCK KGAA-2023517

PATIENT
  Sex: Female
  Weight: 88 kg

DRUGS (2)
  1. NOVOTHYROX [Suspect]
     Active Substance: LEVOTHYROXINE SODIUM
  2. NOVOTHYROX [Suspect]
     Active Substance: LEVOTHYROXINE SODIUM
     Indication: PRODUCT USED FOR UNKNOWN INDICATION

REACTIONS (8)
  - Weight increased [None]
  - Chest pain [None]
  - Sinusitis [None]
  - Hyperventilation [None]
  - Blood potassium decreased [None]
  - Chest discomfort [None]
  - Arthralgia [None]
  - Nausea [Recovered/Resolved]
